FAERS Safety Report 17134953 (Version 1)
Quarter: 2019Q4

REPORT INFORMATION
  Report Type: Spontaneous
  Country: FR (occurrence: FR)
  Receive Date: 20191210
  Receipt Date: 20191210
  Transmission Date: 20200122
  Serious: Yes (Other)
  Sender: FDA-Public Use
  Company Number: FR-MYLANLABS-2019M1072603

PATIENT
  Age: 71 Year
  Sex: Male
  Weight: 67 kg

DRUGS (8)
  1. ZECLAR 500 MG, COMPRIM? PELLICUL? [Suspect]
     Active Substance: CLARITHROMYCIN
     Indication: HELICOBACTER INFECTION
     Dosage: 1 DOSAGE FORM, BID (FOR 5 DAYS)
     Route: 048
     Dates: start: 20160616, end: 20190620
  2. OMEPRAZOL                          /00661201/ [Concomitant]
     Active Substance: OMEPRAZOLE
     Indication: CHRONIC GASTRITIS
     Dosage: UNK
  3. AMOXICILLIN. [Concomitant]
     Active Substance: AMOXICILLIN
  4. INEGY [Interacting]
     Active Substance: EZETIMIBE\SIMVASTATIN
     Indication: ARTERIOSCLEROSIS
     Dosage: 10/20
     Route: 048
     Dates: start: 2005
  5. CARDENSIEL [Concomitant]
     Active Substance: BISOPROLOL FUMARATE
     Dosage: UNK
  6. FLAGYL [Concomitant]
     Active Substance: METRONIDAZOLE\METRONIDAZOLE HYDROCHLORIDE
     Dosage: UNK
  7. RAMIPRIL. [Concomitant]
     Active Substance: RAMIPRIL
  8. PLAVIX [Concomitant]
     Active Substance: CLOPIDOGREL BISULFATE
     Dosage: UNK

REACTIONS (8)
  - Cardiac failure [Unknown]
  - Muscle spasms [Unknown]
  - Drug interaction [Unknown]
  - Myocardial infarction [Unknown]
  - Helicobacter infection [Unknown]
  - Fatigue [Unknown]
  - Aortic aneurysm [Unknown]
  - Contraindicated product administered [Unknown]

NARRATIVE: CASE EVENT DATE: 2011
